FAERS Safety Report 23395743 (Version 1)
Quarter: 2024Q1

REPORT INFORMATION
  Report Type: Other
  Country: US (occurrence: None)
  Receive Date: 20240112
  Receipt Date: 20240112
  Transmission Date: 20240410
  Serious: Yes (Hospitalization)
  Sender: FDA-Public Use
  Company Number: US-ROCHE-3487400

PATIENT
  Age: 34 Year
  Sex: Female

DRUGS (1)
  1. RITUXIMAB [Suspect]
     Active Substance: RITUXIMAB
     Indication: Neuromyelitis optica spectrum disorder
     Route: 042

REACTIONS (4)
  - COVID-19 [Recovering/Resolving]
  - Pneumonia [Unknown]
  - Toxicity to various agents [Unknown]
  - Immunodeficiency [Unknown]
